FAERS Safety Report 8822377 (Version 2)
Quarter: 2012Q4

REPORT INFORMATION
  Report Type: 
  Country: PH (occurrence: PH)
  Receive Date: 20121003
  Receipt Date: 20121005
  Transmission Date: 20130627
  Serious: Yes (Other)
  Sender: FDA-Public Use
  Company Number: PHHY2012PH084846

PATIENT
  Sex: Female

DRUGS (3)
  1. SIMULECT [Suspect]
     Indication: PROPHYLAXIS AGAINST TRANSPLANT REJECTION
  2. TACROLIMUS [Concomitant]
  3. MYCOPHENOLATE MOFETIL [Concomitant]

REACTIONS (2)
  - Nephropathy toxic [Unknown]
  - Kidney transplant rejection [Unknown]
